FAERS Safety Report 24258082 (Version 3)
Quarter: 2024Q3

REPORT INFORMATION
  Report Type: Spontaneous
  Country: US (occurrence: US)
  Receive Date: 20240828
  Receipt Date: 20240927
  Transmission Date: 20241016
  Serious: No
  Sender: PFIZER
  Company Number: US-PFIZER INC-PV202400044593

PATIENT
  Age: 14 Year
  Sex: Male
  Weight: 41.1 kg

DRUGS (3)
  1. GENOTROPIN [Suspect]
     Active Substance: SOMATROPIN
     Indication: Hypopituitarism
     Dosage: DAILY DOSE: ALTERNATE 2.0-2.2 MG/ DAY 6 DAYS/ WEEK
  2. GENOTROPIN [Suspect]
     Active Substance: SOMATROPIN
     Indication: Growth hormone deficiency
     Dosage: DAILY DOSE: ALTERNATE 2.0-2.2 MG/ DAY 6 DAYS/ WEEK
  3. GENOTROPIN [Suspect]
     Active Substance: SOMATROPIN
     Dosage: ALTERNATE 2MG AND 2.2MG EVERY OTHER DAY

REACTIONS (2)
  - Device mechanical issue [Unknown]
  - Device use error [Unknown]
